FAERS Safety Report 8355478-8 (Version None)
Quarter: 2012Q2

REPORT INFORMATION
  Report Type: 
  Country: None (occurrence: None)
  Receive Date: 20120512
  Receipt Date: 20120501
  Transmission Date: 20120825
  Serious: Yes (Hospitalization, Other)
  Sender: FDA-Public Use
  Company Number: US-ELI_LILLY_AND_COMPANY-US201201002875

PATIENT
  Sex: Female
  Weight: 81.179 kg

DRUGS (9)
  1. ZAROXOLYN [Concomitant]
  2. TORSEMIDE [Concomitant]
  3. POTASSIUM CHLORIDE [Concomitant]
  4. COREG [Concomitant]
  5. ALLOPURINOL [Concomitant]
  6. FORTEO [Suspect]
     Dosage: 20 UG, QD
     Route: 058
  7. FORTEO [Suspect]
     Indication: OSTEOPOROSIS
     Dosage: 20 UG, QD
     Route: 058
     Dates: start: 20110401
  8. MOBIC [Concomitant]
  9. ZOLPIDEM [Concomitant]

REACTIONS (3)
  - INTESTINAL RESECTION [None]
  - DIVERTICULITIS [None]
  - HAEMORRHAGE [None]
